FAERS Safety Report 20947538 (Version 1)
Quarter: 2022Q2

REPORT INFORMATION
  Report Type: Spontaneous
  Country: US (occurrence: US)
  Receive Date: 20220610
  Receipt Date: 20220610
  Transmission Date: 20220720
  Serious: No
  Sender: FDA-Public Use
  Company Number: US-RIGEL PHARMACEUTICALS, INC.-2022FOS000037

PATIENT
  Sex: Male

DRUGS (1)
  1. TAVALISSE [Suspect]
     Active Substance: FOSTAMATINIB
     Indication: Immune thrombocytopenia
     Dosage: 100 MG, BID
     Route: 048
     Dates: start: 201908

REACTIONS (7)
  - Neoplasm malignant [Unknown]
  - Solar lentigo [Unknown]
  - Nasal congestion [Unknown]
  - Blood bilirubin increased [Unknown]
  - Spinal disorder [Unknown]
  - Walking aid user [Unknown]
  - Dysstasia [Unknown]
